FAERS Safety Report 8215227-0 (Version None)
Quarter: 2012Q1

REPORT INFORMATION
  Report Type: 
  Country: None (occurrence: None)
  Receive Date: 20120316
  Receipt Date: 20120315
  Transmission Date: 20120608
  Serious: Yes (Other)
  Sender: FDA-Public Use
  Company Number: IT-BAYER-2012-025828

PATIENT
  Age: 20 Year
  Sex: Male

DRUGS (2)
  1. ASPIRIN [Suspect]
     Dosage: 500 MG, ONCE
     Route: 048
     Dates: start: 20120225, end: 20120225
  2. ACETAMINOPHEN [Suspect]
     Dosage: 500 MG, ONCE
     Route: 048
     Dates: start: 20120225, end: 20120225

REACTIONS (4)
  - ANGIOEDEMA [None]
  - PALATAL OEDEMA [None]
  - URTICARIA [None]
  - OROPHARYNGEAL DISCOMFORT [None]
